FAERS Safety Report 19118153 (Version 1)
Quarter: 2021Q2

REPORT INFORMATION
  Report Type: Spontaneous
  Country: US (occurrence: US)
  Receive Date: 20210409
  Receipt Date: 20210409
  Transmission Date: 20210717
  Serious: Yes (Other)
  Sender: FDA-Public Use
  Company Number: US-BAYER-2021-119563

PATIENT
  Age: 85 Year
  Sex: Female

DRUGS (2)
  1. VITRAKVI [Suspect]
     Active Substance: LAROTRECTINIB
     Indication: COLORECTAL CANCER METASTATIC
     Dosage: 50 MG, BID
     Route: 048
  2. VITRAKVI [Suspect]
     Active Substance: LAROTRECTINIB
     Indication: COLORECTAL CANCER METASTATIC
     Dosage: 100 MG, BID
     Route: 048

REACTIONS (1)
  - Liver function test increased [None]
